FAERS Safety Report 12241820 (Version 2)
Quarter: 2016Q2

REPORT INFORMATION
  Report Type: Spontaneous
  Country: US (occurrence: US)
  Receive Date: 20160406
  Receipt Date: 20160415
  Transmission Date: 20160815
  Serious: Yes (Hospitalization, Other)
  Sender: FDA-Public Use
  Company Number: US-PFIZER INC-2016191933

PATIENT
  Age: 71 Year
  Sex: Female
  Weight: 106.59 kg

DRUGS (17)
  1. INSULIN ASPART [Concomitant]
     Active Substance: INSULIN ASPART
     Dosage: 100 IU, UNK
  2. LYRICA [Suspect]
     Active Substance: PREGABALIN
     Indication: PERIPHERAL VASCULAR DISORDER
     Dosage: 150 MG, 3X/DAY
     Route: 048
  3. AZITHROMYCIN ANHYDROUS. [Concomitant]
     Active Substance: AZITHROMYCIN ANHYDROUS
     Dosage: 500 MG, UNK
  4. BUMETANIDE. [Concomitant]
     Active Substance: BUMETANIDE
     Dosage: 1 MG, UNK
  5. CEFUROXIME. [Concomitant]
     Active Substance: CEFUROXIME
     Dosage: 250 MG, UNK
  6. POTASSIUM CHLORIDE. [Concomitant]
     Active Substance: POTASSIUM CHLORIDE
     Dosage: UNK
  7. DIAZEPAM. [Concomitant]
     Active Substance: DIAZEPAM
     Dosage: 2 MG, UNK
  8. GLIMEPIRIDE. [Concomitant]
     Active Substance: GLIMEPIRIDE
     Dosage: 4 MG, UNK
  9. PANTOPRAZOLE [Concomitant]
     Active Substance: PANTOPRAZOLE SODIUM
     Dosage: 40 MG, UNK
  10. ATORVASTATIN [Concomitant]
     Active Substance: ATORVASTATIN
     Dosage: 40 MG, UNK
  11. CARVEDILOL. [Concomitant]
     Active Substance: CARVEDILOL
     Dosage: 3.125 MG, UNK
  12. FERROUS SULFATE. [Concomitant]
     Active Substance: FERROUS SULFATE
     Dosage: 325 MG, UNK
  13. LEVOTHYROXINE. [Concomitant]
     Active Substance: LEVOTHYROXINE
     Dosage: 75 MG, UNK
  14. MOMETASONE AND FORMOTEROL [Concomitant]
     Dosage: UNK
     Route: 045
  15. ASPIRIN. [Concomitant]
     Active Substance: ASPIRIN
     Dosage: 81 MG, UNK
  16. ALBUTEROL SULFATE INHALER [Concomitant]
     Dosage: UNK
     Route: 045
  17. BUSPIRONE [Concomitant]
     Active Substance: BUSPIRONE HYDROCHLORIDE
     Dosage: 5 MG, UNK

REACTIONS (9)
  - Infection [Unknown]
  - Dyspnoea [Unknown]
  - Myocardial infarction [Unknown]
  - Pneumonia [Unknown]
  - Arrhythmia [Unknown]
  - Sleep apnoea syndrome [Unknown]
  - Insomnia [Unknown]
  - Product use issue [Unknown]
  - Pain in extremity [Not Recovered/Not Resolved]

NARRATIVE: CASE EVENT DATE: 201603
